FAERS Safety Report 16826181 (Version 1)
Quarter: 2019Q3

REPORT INFORMATION
  Report Type: Spontaneous
  Country: US (occurrence: US)
  Receive Date: 20190919
  Receipt Date: 20190919
  Transmission Date: 20191005
  Serious: No
  Sender: FDA-Public Use
  Company Number: US-AUROBINDO-AUR-APL-2019-045311

PATIENT
  Age: 68 Year
  Sex: Male

DRUGS (2)
  1. ALPRAZOLAM TABLETS USP 1MG [Suspect]
     Active Substance: ALPRAZOLAM
     Indication: ANXIETY
     Dosage: 1 DOSAGE FORM, ONCE A DAY, 1 TABLET PER DAY
     Route: 065
     Dates: start: 20190723
  2. ALPRAZOLAM TABLETS USP 1MG [Suspect]
     Active Substance: ALPRAZOLAM
     Indication: STRESS

REACTIONS (1)
  - Drug ineffective [Unknown]

NARRATIVE: CASE EVENT DATE: 20190723
